FAERS Safety Report 4647421-X (Version None)
Quarter: 2005Q2

REPORT INFORMATION
  Report Type: 
  Country: None (occurrence: None)
  Receive Date: 20050426
  Receipt Date: 20050411
  Transmission Date: 20051028
  Serious: Yes (Death, Hospitalization)
  Sender: FDA-Public Use
  Company Number: 2005-0008100

PATIENT
  Age: 29 Year

DRUGS (6)
  1. VIREAD [Suspect]
     Indication: HIV INFECTION
     Dosage: 300M MG, 1 IN 1 D, ORAL
     Route: 048
     Dates: end: 20050107
  2. STAVUDINE [Suspect]
     Indication: HIV INFECTION
     Dosage: 40 MG, 2 IN 1 D, ORAL
     Route: 048
     Dates: end: 20050107
  3. LOPINAVIR (LOPINAVIR) [Suspect]
     Indication: HIV INFECTION
     Dosage: 3 IN 2 D, ORAL
     Route: 048
     Dates: end: 20050107
  4. CO-TRIMOXAZOLE (CO-TRIMOXAZOLE) [Concomitant]
  5. RISPERDAL [Concomitant]
  6. OMEPRAZOLE [Concomitant]

REACTIONS (5)
  - ABDOMINAL PAIN [None]
  - ELECTROMECHANICAL DISSOCIATION [None]
  - HEPATIC STEATOSIS [None]
  - LACTIC ACIDOSIS [None]
  - PANCREATITIS [None]
